FAERS Safety Report 7240940-1 (Version None)
Quarter: 2011Q1

REPORT INFORMATION
  Report Type: 
  Country: None (occurrence: None)
  Receive Date: 20110124
  Receipt Date: 20110119
  Transmission Date: 20110831
  Serious: Yes (Death)
  Sender: FDA-Public Use
  Company Number: PHHY2010NL53653

PATIENT
  Sex: Male

DRUGS (5)
  1. ZOMETA [Suspect]
     Dosage: 4 MG
     Route: 042
     Dates: start: 20100708
  2. ZOMETA [Suspect]
     Dosage: 4 MG
     Route: 042
     Dates: start: 20101102
  3. ZOMETA [Suspect]
     Dosage: 4 MG
     Route: 042
     Dates: start: 20101228
  4. ZOMETA [Suspect]
     Indication: PROSTATE CANCER
     Dosage: 4 MG
     Route: 042
     Dates: start: 20100416
  5. ZOMETA [Suspect]
     Dosage: 4 MG
     Route: 042
     Dates: start: 20100812

REACTIONS (3)
  - DEATH [None]
  - TOOTHACHE [None]
  - TOOTH DISORDER [None]
